FAERS Safety Report 8187538-9 (Version None)
Quarter: 2012Q1

REPORT INFORMATION
  Report Type: 
  Country: None (occurrence: None)
  Receive Date: 20120306
  Receipt Date: 20120228
  Transmission Date: 20120608
  Serious: Yes (Hospitalization)
  Sender: FDA-Public Use
  Company Number: FR-UCBSA-052418

PATIENT
  Age: 26 Year
  Sex: Male

DRUGS (15)
  1. VFEND [Suspect]
     Indication: ASPERGILLOSIS
     Route: 048
     Dates: start: 20110830
  2. NEORAL [Concomitant]
  3. VITAMIN B1/B6 [Concomitant]
  4. VITAMIN D [Concomitant]
  5. KEPPRA [Suspect]
     Route: 048
  6. CLINDAMYCIN HCL [Suspect]
     Indication: CEREBRAL TOXOPLASMOSIS
     Dates: start: 20111129
  7. DESLORATADINE [Concomitant]
     Dosage: 1 TABLET DAILY
  8. CREON [Concomitant]
  9. PYRIMETHAMINE TAB [Suspect]
     Indication: CEREBRAL TOXOPLASMOSIS
     Dosage: DAILY DOSE: 25 MG
     Route: 048
     Dates: start: 20110815
  10. PREDNISOLONE [Concomitant]
     Dosage: DAILY DOSE: 15 MG
  11. PREVISCAN [Concomitant]
  12. IMOVANE [Concomitant]
     Dosage: 1 UNIT DAILY
  13. LEUCOVORIN CALCIUM [Concomitant]
     Dosage: DAILY DOSE: 25 MG
  14. PANTOPRAZOLE [Suspect]
     Dosage: DAILY DOSE: 40 MG
  15. CALCIPARINE [Concomitant]

REACTIONS (1)
  - NEUTROPENIA [None]
